FAERS Safety Report 6399073-9 (Version None)
Quarter: 2009Q4

REPORT INFORMATION
  Report Type: 
  Country: None (occurrence: None)
  Receive Date: 20091008
  Receipt Date: 20090928
  Transmission Date: 20100525
  Serious: Yes (Hospitalization)
  Sender: FDA-Public Use
  Company Number: 8052629

PATIENT
  Age: 54 Year
  Sex: Female

DRUGS (1)
  1. CIMZIA [Suspect]
     Dosage: 400 MG SC
     Route: 058
     Dates: start: 20090314

REACTIONS (4)
  - ARTHRALGIA [None]
  - COLITIS [None]
  - CONDITION AGGRAVATED [None]
  - HAEMATOCHEZIA [None]
